FAERS Safety Report 6902113-9 (Version None)
Quarter: 2010Q3

REPORT INFORMATION
  Report Type: 
  Country: None (occurrence: None)
  Receive Date: 20100803
  Receipt Date: 20080421
  Transmission Date: 20110219
  Serious: No
  Sender: FDA-Public Use
  Company Number: US-PFIZER INC-2008035694

PATIENT
  Age: 75 Year
  Sex: Female

DRUGS (4)
  1. LYRICA [Suspect]
     Indication: FIBROMYALGIA
     Dates: start: 20080101
  2. LEVOTHROID [Suspect]
     Indication: HYPOTHYROIDISM
     Dates: end: 20071201
  3. LOVASTATIN [Concomitant]
  4. ANTIGLAUCOMA PREPARATIONS AND MIOTICS [Concomitant]

REACTIONS (1)
  - WEIGHT INCREASED [None]
